FAERS Safety Report 6338966-5 (Version None)
Quarter: 2009Q3

REPORT INFORMATION
  Report Type: 
  Country: None (occurrence: None)
  Receive Date: 20090903
  Receipt Date: 20090825
  Transmission Date: 20100115
  Serious: Yes (Hospitalization)
  Sender: FDA-Public Use
  Company Number: JP-ASTRAZENECA-2009SE06968

PATIENT
  Age: 77 Year
  Sex: Male
  Weight: 53 kg

DRUGS (18)
  1. PLACEBO [Suspect]
     Indication: PROSTATE CANCER
     Route: 048
     Dates: start: 20090420, end: 20090807
  2. ZOLADEX [Suspect]
     Indication: PROSTATE CANCER
     Route: 058
     Dates: start: 20051101
  3. PREDONINE [Suspect]
     Indication: PROSTATE CANCER
     Route: 048
     Dates: start: 20090714
  4. VOLTAREN [Concomitant]
     Indication: LUMBAR SPINAL STENOSIS
     Dosage: OPTIMAL DOSE, AS REQUIRED
     Route: 003
     Dates: start: 20061208
  5. MICARDIS [Concomitant]
     Indication: HYPERTENSION
     Route: 048
     Dates: start: 20080401, end: 20090812
  6. OMEPRAL TABLETS [Concomitant]
     Indication: GASTRITIS ATROPHIC
     Route: 048
     Dates: start: 20080401
  7. ADALAT CC [Concomitant]
     Indication: HYPERTENSION
     Route: 048
     Dates: start: 20080701
  8. URIEF [Concomitant]
     Indication: BENIGN PROSTATIC HYPERPLASIA
     Route: 048
     Dates: start: 20080701
  9. STROCAIN [Concomitant]
     Indication: GASTRITIS ATROPHIC
     Route: 048
     Dates: start: 20080701, end: 20090726
  10. COLIOPAN [Concomitant]
     Indication: GASTRITIS ATROPHIC
     Dosage: AS REQUIRED
     Route: 048
     Dates: start: 20080701
  11. TARIVID [Concomitant]
     Indication: CONJUNCTIVITIS ALLERGIC
     Dosage: OPTIMAL DOSE
     Route: 047
     Dates: start: 20080801
  12. EYEVINAL [Concomitant]
     Indication: CONJUNCTIVITIS ALLERGIC
     Dosage: OPTIMAL DOSE
     Route: 047
     Dates: start: 20080801
  13. FLUMETHOLON [Concomitant]
     Indication: CONJUNCTIVITIS ALLERGIC
     Dosage: OPTIMAL DOSE
     Route: 047
     Dates: start: 20080801
  14. ALLOID G [Concomitant]
     Indication: GASTRITIS ATROPHIC
     Route: 048
     Dates: start: 20080901
  15. PROCYLIN [Concomitant]
     Indication: LUMBAR SPINAL STENOSIS
     Route: 048
     Dates: start: 20090414
  16. MOBIC [Concomitant]
     Indication: SPINAL OSTEOARTHRITIS
     Dosage: AS REQUIRED
     Route: 048
     Dates: start: 20090414
  17. LUPRAC [Concomitant]
     Indication: CARDIAC FAILURE
     Route: 048
     Dates: start: 20090605
  18. SELARA [Concomitant]
     Indication: HYPERTENSION
     Route: 048
     Dates: start: 20090703

REACTIONS (2)
  - MYOCARDIAL INFARCTION [None]
  - PRINZMETAL ANGINA [None]
